FAERS Safety Report 14650428 (Version 1)
Quarter: 2018Q1

REPORT INFORMATION
  Report Type: Spontaneous
  Country: GR (occurrence: GR)
  Receive Date: 20180316
  Receipt Date: 20180316
  Transmission Date: 20180509
  Serious: Yes (Death)
  Sender: FDA-Public Use
  Company Number: GR-PFIZER INC-2018104389

PATIENT
  Age: 39 Year
  Sex: Female

DRUGS (5)
  1. VANCOMYCIN HCL [Suspect]
     Active Substance: VANCOMYCIN HYDROCHLORIDE
     Indication: STREPTOCOCCAL BACTERAEMIA
     Dosage: 1 G, UNK
     Route: 042
  2. AMIKACIN [Suspect]
     Active Substance: AMIKACIN
     Indication: STREPTOCOCCAL BACTERAEMIA
     Dosage: 1 G, UNK
     Route: 042
  3. NAHCO3 [Suspect]
     Active Substance: SODIUM BICARBONATE
     Indication: STREPTOCOCCAL BACTERAEMIA
     Dosage: UNK
     Route: 042
  4. CALCIUM GLUCONATE. [Suspect]
     Active Substance: CALCIUM GLUCONATE
     Indication: STREPTOCOCCAL BACTERAEMIA
     Dosage: UNK
  5. PIPERACILLIN/TAZOBACTAM [Suspect]
     Active Substance: PIPERACILLIN SODIUM\TAZOBACTAM SODIUM
     Indication: STREPTOCOCCAL BACTERAEMIA
     Dosage: 4.5 G, UNK
     Route: 042

REACTIONS (2)
  - Pulseless electrical activity [Fatal]
  - Cardiac arrest [Fatal]
